FAERS Safety Report 10159209 (Version 1)
Quarter: 2014Q2

REPORT INFORMATION
  Report Type: Report from Study
  Country: US (occurrence: US)
  Receive Date: 20140508
  Receipt Date: 20140508
  Transmission Date: 20141212
  Serious: Yes (Hospitalization)
  Sender: FDA-Public Use
  Company Number: PHEH2014US008912

PATIENT
  Age: 81 Year
  Sex: Male
  Weight: 49.34 kg

DRUGS (10)
  1. GLEEVEC [Suspect]
     Indication: GASTROINTESTINAL STROMAL TUMOUR
     Dosage: 400 MG, QD
     Dates: start: 20140424, end: 20140425
  2. INSULIN [Concomitant]
     Indication: DIABETES MELLITUS
     Dosage: 500 U, AS NEEDED
     Route: 058
  3. ZOCOR [Concomitant]
     Indication: BLOOD POTASSIUM ABNORMAL
     Dosage: 20 MG, QD
     Route: 048
  4. POTASSIUM [Concomitant]
     Dosage: 20 MG, QD
     Route: 048
  5. LOSARTAN [Concomitant]
     Dosage: 100 MG/KG, QD
     Route: 048
  6. LYRICA [Concomitant]
     Dosage: 150 MG, QD
     Route: 048
  7. SPIRIVA [Concomitant]
     Dosage: UNK UKN, QD
     Route: 055
  8. FUROSEMIDE [Concomitant]
     Dosage: 40 MG, QD
     Route: 048
  9. TAMSULOSIN [Concomitant]
     Dosage: 0.4 MG, QD
     Route: 048
  10. FLOXICAM [Concomitant]
     Dosage: 500 MG, QD
     Route: 048

REACTIONS (13)
  - Acute coronary syndrome [Unknown]
  - Myocardial infarction [Recovered/Resolved]
  - Chest pain [Recovered/Resolved]
  - Hypoaesthesia [Recovered/Resolved]
  - Renal failure chronic [Unknown]
  - Diabetes mellitus inadequate control [Unknown]
  - Blood glucose increased [Recovered/Resolved]
  - Hyponatraemia [Unknown]
  - Blood glucose decreased [Unknown]
  - Essential hypertension [Unknown]
  - Anxiety [Recovering/Resolving]
  - Blood potassium decreased [Unknown]
  - Dyspepsia [Unknown]
